FAERS Safety Report 5403264-0 (Version None)
Quarter: 2007Q3

REPORT INFORMATION
  Report Type: 
  Country: None (occurrence: None)
  Receive Date: 20070727
  Receipt Date: 20070710
  Transmission Date: 20080115
  Serious: Yes (Hospitalization)
  Sender: FDA-Public Use
  Company Number: CIO07011007

PATIENT
  Age: 55 Year
  Sex: Female
  Weight: 101.6 kg

DRUGS (4)
  1. METAMUCIL CPSULES(PSYLLIUM HYDROPHILIC MUCILLOID 3.2 G) CAPSULE, 6CAPS [Suspect]
     Dosage: 1 CAPSUL, 1/DAY, ORAL
     Route: 048
     Dates: end: 20070710
  2. UNKNOWN WHITE CAPSULE [Suspect]
     Dosage: ORAL
     Route: 048
  3. PREDNISON (PREDNISONE) [Concomitant]
  4. ANTIBIOTIC (CHLORAMPHENICOL) [Concomitant]

REACTIONS (7)
  - BLOOD GLUCOSE FLUCTUATION [None]
  - CHEST PAIN [None]
  - DYSPHAGIA [None]
  - DYSPNOEA [None]
  - FLATULENCE [None]
  - NEUROPATHY [None]
  - TREMOR [None]
